FAERS Safety Report 7625666-4 (Version None)
Quarter: 2011Q3

REPORT INFORMATION
  Report Type: 
  Country: None (occurrence: None)
  Receive Date: 20110721
  Receipt Date: 20110713
  Transmission Date: 20111222
  Serious: Yes (Other)
  Sender: FDA-Public Use
  Company Number: US-AMGEN-USACT2011019248

PATIENT
  Sex: Male

DRUGS (14)
  1. ULTRAM [Concomitant]
  2. NILANDRON [Concomitant]
  3. OMEPRAZOLE [Concomitant]
  4. EPIPEN [Concomitant]
  5. FIBER [Concomitant]
  6. FISH OIL [Concomitant]
  7. CENTRUM SILVER [Concomitant]
  8. METOPROLOL TARTRATE [Concomitant]
  9. ASCORBIC ACID [Concomitant]
  10. CALTRATE D PLUS MINERALS [Concomitant]
  11. DENOSUMAB [Suspect]
     Indication: PROSTATE CANCER
     Dosage: UNK
     Dates: start: 20080730
  12. MOTRIN [Concomitant]
  13. IBUPROFEN (ADVIL) [Concomitant]
  14. LOVAZA [Concomitant]

REACTIONS (1)
  - BONE DISORDER [None]
